FAERS Safety Report 14582613 (Version 1)
Quarter: 2018Q1

REPORT INFORMATION
  Report Type: Report from Study
  Country: DE (occurrence: DE)
  Receive Date: 20180228
  Receipt Date: 20180228
  Transmission Date: 20180509
  Serious: Yes (Other)
  Sender: FDA-Public Use
  Company Number: PHHO2018DE002758

PATIENT
  Age: 60 Year
  Sex: Female
  Weight: 97 kg

DRUGS (3)
  1. BLINDED NO TREATMENT RECEIVED [Suspect]
     Active Substance: INVESTIGATIONAL PRODUCT
     Indication: PULMONARY SARCOIDOSIS
     Dosage: CODE NOT BROKEN
     Route: 058
     Dates: start: 20170926, end: 20180119
  2. BLINDED ACZ885 [Suspect]
     Active Substance: CANAKINUMAB
     Indication: PULMONARY SARCOIDOSIS
     Dosage: CODE NOT BROKEN
     Route: 058
     Dates: start: 20170926, end: 20180119
  3. BLINDED PLACEBO [Suspect]
     Active Substance: INVESTIGATIONAL PRODUCT
     Indication: PULMONARY SARCOIDOSIS
     Dosage: CODE NOT BROKEN
     Route: 058
     Dates: start: 20170926, end: 20180119

REACTIONS (1)
  - Influenza [Unknown]

NARRATIVE: CASE EVENT DATE: 20180216
